FAERS Safety Report 16479868 (Version 1)
Quarter: 2019Q2

REPORT INFORMATION
  Report Type: Spontaneous
  Country: CA (occurrence: CA)
  Receive Date: 20190626
  Receipt Date: 20190626
  Transmission Date: 20190711
  Serious: Yes (Life-Threatening, Hospitalization)
  Sender: FDA-Public Use
  Company Number: CA-TEVA-2019-CA-1065847

PATIENT
  Age: 19 Year
  Sex: Female
  Weight: 87 kg

DRUGS (2)
  1. ETHINYLESTRADIOL/LEVONORGESTREL [Suspect]
     Active Substance: ETHINYL ESTRADIOL\LEVONORGESTREL
     Indication: CONTRACEPTION
     Route: 048
  2. XARELTO [Suspect]
     Active Substance: RIVAROXABAN

REACTIONS (9)
  - Hypotension [Recovering/Resolving]
  - Vertigo [Recovering/Resolving]
  - Emergency care examination [Recovering/Resolving]
  - Heart rate increased [Recovering/Resolving]
  - Pulmonary embolism [Recovering/Resolving]
  - Transfusion [Recovering/Resolving]
  - Anaemia [Recovering/Resolving]
  - Emergency care [Recovering/Resolving]
  - Menorrhagia [Recovering/Resolving]
